FAERS Safety Report 8394736-8 (Version None)
Quarter: 2012Q2

REPORT INFORMATION
  Report Type: 
  Country: None (occurrence: None)
  Receive Date: 20120530
  Receipt Date: 20120524
  Transmission Date: 20120825
  Serious: Yes (Hospitalization)
  Sender: FDA-Public Use
  Company Number: US-NAPPMUNDI-USA-2012-0087581

PATIENT
  Sex: Male

DRUGS (3)
  1. BUTRANS [Suspect]
     Indication: PRODUCT USED FOR UNKNOWN INDICATION
     Dosage: 5 MCG/HR, UNK
     Route: 062
     Dates: start: 20120417
  2. BUTRANS [Suspect]
     Dosage: 20 MCG/HR, UNK
     Route: 062
  3. BUTRANS [Suspect]
     Dosage: 10 MCG/HR, UNK
     Route: 062

REACTIONS (8)
  - DIARRHOEA [None]
  - PANCREATITIS [None]
  - CONFUSIONAL STATE [None]
  - VOMITING [None]
  - NERVOUSNESS [None]
  - DRUG EFFECT INCREASED [None]
  - DIZZINESS [None]
  - LACRIMATION INCREASED [None]
